FAERS Safety Report 25012616 (Version 1)
Quarter: 2025Q1

REPORT INFORMATION
  Report Type: Spontaneous
  Country: FR (occurrence: FR)
  Receive Date: 20250226
  Receipt Date: 20250226
  Transmission Date: 20250409
  Serious: Yes (Hospitalization, Other)
  Sender: TEVA
  Company Number: None

PATIENT
  Age: 69 Year
  Sex: Female

DRUGS (1)
  1. IMATINIB [Suspect]
     Active Substance: IMATINIB
     Indication: Chronic myeloid leukaemia
     Route: 048
     Dates: start: 20241027, end: 20250120

REACTIONS (5)
  - Drug reaction with eosinophilia and systemic symptoms [Not Recovered/Not Resolved]
  - Eosinophilia [Recovering/Resolving]
  - Oedema peripheral [Recovering/Resolving]
  - Dermatitis exfoliative generalised [Not Recovered/Not Resolved]
  - Hepatic cytolysis [Not Recovered/Not Resolved]

NARRATIVE: CASE EVENT DATE: 20250101
